FAERS Safety Report 6766551-X (Version None)
Quarter: 2010Q2

REPORT INFORMATION
  Report Type: 
  Country: None (occurrence: None)
  Receive Date: 20100611
  Receipt Date: 20100531
  Transmission Date: 20101027
  Serious: Yes (Hospitalization, Other)
  Sender: FDA-Public Use
  Company Number: US-ROCHE-706889

PATIENT
  Age: 48 Year
  Sex: Male

DRUGS (8)
  1. DIAZEPAM [Suspect]
     Indication: DRUG USE FOR UNKNOWN INDICATION
     Dosage: OVERDOSE
     Route: 048
  2. DIAZEPAM [Suspect]
     Route: 048
  3. NEBIVOLOL HCL [Suspect]
     Indication: HYPERTENSION
     Dosage: OVERDOSE
     Route: 048
  4. NEBIVOLOL HCL [Suspect]
     Route: 048
  5. ETHANOL [Suspect]
     Indication: DRUG USE FOR UNKNOWN INDICATION
     Dosage: OVERDOSE
     Route: 048
  6. BACLOFEN [Suspect]
     Indication: DRUG USE FOR UNKNOWN INDICATION
     Dosage: OVERDOSE
     Route: 048
  7. BACLOFEN [Suspect]
     Route: 048
  8. COCAINE [Suspect]
     Indication: DRUG USE FOR UNKNOWN INDICATION
     Dosage: OVERDOSE
     Route: 048

REACTIONS (6)
  - BRADYCARDIA [None]
  - CARDIAC ARREST [None]
  - COMA [None]
  - HYPOTENSION [None]
  - INTENTIONAL OVERDOSE [None]
  - SUICIDE ATTEMPT [None]
